FAERS Safety Report 5218712-9 (Version None)
Quarter: 2007Q1

REPORT INFORMATION
  Report Type: 
  Country: None (occurrence: None)
  Receive Date: 20070122
  Receipt Date: 20061231
  Transmission Date: 20070707
  Serious: Yes (Hospitalization, Other)
  Sender: FDA-Public Use
  Company Number: 234641

PATIENT
  Sex: 0

DRUGS (4)
  1. AVASTIN [Suspect]
     Indication: COLORECTAL CANCER
  2. OXALIPLATIN [Suspect]
     Indication: DRUG USE FOR UNKNOWN INDICATION
  3. CAPECITABINE(CAPECITABINE) [Suspect]
     Indication: DRUG USE FOR UNKNOWN INDICATION
  4. ZOCOR [Suspect]
     Indication: DRUG USE FOR UNKNOWN INDICATION

REACTIONS (8)
  - HEPATITIS [None]
  - INTESTINAL INFARCTION [None]
  - INTESTINAL ISCHAEMIA [None]
  - LARGE INTESTINE PERFORATION [None]
  - MUCOSAL INFLAMMATION [None]
  - RHABDOMYOLYSIS [None]
  - SHOCK [None]
  - STOMATITIS [None]
